FAERS Safety Report 5366734-X (Version None)
Quarter: 2007Q2

REPORT INFORMATION
  Report Type: 
  Country: None (occurrence: None)
  Receive Date: 20070622
  Receipt Date: 20060623
  Transmission Date: 20071010
  Serious: No
  Sender: FDA-Public Use
  Company Number: US-ASTRAZENECA-2006UW13357

PATIENT
  Age: 62 Year
  Sex: Female
  Weight: 56.7 kg

DRUGS (4)
  1. RHINOCORT [Suspect]
     Indication: POSTNASAL DRIP
     Route: 045
     Dates: start: 20060622
  2. THYROID TAB [Concomitant]
  3. PRILOSEC [Concomitant]
  4. VITAMIN [Concomitant]

REACTIONS (4)
  - COUGH [None]
  - MUSCLE SPASMS [None]
  - PALPITATIONS [None]
  - URTICARIA [None]
